FAERS Safety Report 7626947-0 (Version None)
Quarter: 2011Q3

REPORT INFORMATION
  Report Type: 
  Country: None (occurrence: None)
  Receive Date: 20110721
  Receipt Date: 20110713
  Transmission Date: 20111222
  Serious: Yes (Hospitalization)
  Sender: FDA-Public Use
  Company Number: US-PFIZER INC-2011158788

PATIENT
  Sex: Female
  Weight: 86.17 kg

DRUGS (9)
  1. ZOCOR [Concomitant]
     Indication: BLOOD CHOLESTEROL INCREASED
     Dosage: 40 MG, DAILY
  2. PREMPRO [Concomitant]
     Dosage: UNK, DAILY
  3. LYRICA [Suspect]
     Indication: BACK PAIN
     Dosage: 75 MG, 2X/DAY
     Route: 048
     Dates: start: 20110401
  4. LEVOTHYROXINE SODIUM [Concomitant]
     Indication: THYROID DISORDER
     Dosage: 88 MG, 2X/DAY
  5. ACIPHEX [Concomitant]
     Dosage: 1 MG, DAILY
  6. NASONEX [Concomitant]
     Indication: SINUS DISORDER
     Dosage: UNK, AS NEEDED
  7. LYRICA [Suspect]
     Indication: PAIN IN EXTREMITY
  8. CALCIUM CARBONATE [Concomitant]
     Dosage: 1000 MG, 4X/DAY
  9. OPANA ER [Concomitant]
     Dosage: 80 MG, 2X/DAY

REACTIONS (6)
  - LOSS OF CONSCIOUSNESS [None]
  - MALAISE [None]
  - DEHYDRATION [None]
  - VOMITING [None]
  - DRUG EFFECT INCREASED [None]
  - PYREXIA [None]
